FAERS Safety Report 5633535-4 (Version None)
Quarter: 2008Q1

REPORT INFORMATION
  Report Type: 
  Country: None (occurrence: None)
  Receive Date: 20080221
  Receipt Date: 20080212
  Transmission Date: 20080703
  Serious: Yes (Other)
  Sender: FDA-Public Use
  Company Number: US-WYE-H02606508

PATIENT
  Sex: Female

DRUGS (2)
  1. TORISEL [Suspect]
     Indication: RENAL CELL CARCINOMA
     Dosage: 25 MG INFUSION STOPPED AFTER COUPLE OF MINUTES OF STARTING THERAPY
     Route: 042
     Dates: start: 20080211, end: 20080211
  2. TORISEL [Suspect]
     Route: 042
     Dates: start: 20080212

REACTIONS (4)
  - BACK PAIN [None]
  - HYPERHIDROSIS [None]
  - HYPERSENSITIVITY [None]
  - OXYGEN SATURATION DECREASED [None]
